FAERS Safety Report 12725415 (Version 1)
Quarter: 2016Q3

REPORT INFORMATION
  Report Type: Spontaneous
  Country: US (occurrence: US)
  Receive Date: 20160908
  Receipt Date: 20160908
  Transmission Date: 20161109
  Serious: Yes (Hospitalization)
  Sender: FDA-Public Use
  Company Number: US-RELYPSA-RLY2016002123

PATIENT
  Sex: Female

DRUGS (22)
  1. ZAROXOLYN [Concomitant]
     Active Substance: METOLAZONE
  2. SEVELAMER CARBONATE. [Concomitant]
     Active Substance: SEVELAMER CARBONATE
  3. NOVOLOG [Concomitant]
     Active Substance: INSULIN ASPART
  4. RENVELA [Concomitant]
     Active Substance: SEVELAMER CARBONATE
  5. SENSIPAR [Concomitant]
     Active Substance: CINACALCET HYDROCHLORIDE
  6. ALLOPURINOL. [Concomitant]
     Active Substance: ALLOPURINOL
  7. VELTASSA [Suspect]
     Active Substance: PATIROMER
     Indication: HYPERKALAEMIA
     Dosage: 8.4 G, QD
     Route: 048
  8. PHOSLO [Concomitant]
     Active Substance: CALCIUM ACETATE
  9. LORAZEPAM. [Concomitant]
     Active Substance: LORAZEPAM
  10. ASACOL HD [Concomitant]
     Active Substance: MESALAMINE
  11. PROTONIX                           /00661201/ [Concomitant]
     Active Substance: OMEPRAZOLE
  12. COREG [Concomitant]
     Active Substance: CARVEDILOL
  13. CALCIUM ACETATE. [Concomitant]
     Active Substance: CALCIUM ACETATE
  14. ARANESP [Concomitant]
     Active Substance: DARBEPOETIN ALFA
  15. ZOCOR [Concomitant]
     Active Substance: SIMVASTATIN
  16. NOVOLIN [Concomitant]
     Active Substance: INSULIN HUMAN
  17. HUMULIN NOS [Concomitant]
     Active Substance: INSULIN HUMAN
  18. AMBIEN CR [Concomitant]
     Active Substance: ZOLPIDEM TARTRATE
  19. NEURONTIN [Concomitant]
     Active Substance: GABAPENTIN
  20. MIDODRINE HCL [Concomitant]
     Active Substance: MIDODRINE HYDROCHLORIDE
  21. LEXAPRO [Concomitant]
     Active Substance: ESCITALOPRAM OXALATE
  22. HYDROXYZINE HCL [Concomitant]
     Active Substance: HYDROXYZINE HYDROCHLORIDE

REACTIONS (1)
  - Hospitalisation [Unknown]
